FAERS Safety Report 8184114-9 (Version None)
Quarter: 2012Q1

REPORT INFORMATION
  Report Type: 
  Country: None (occurrence: None)
  Receive Date: 20120305
  Receipt Date: 20120216
  Transmission Date: 20120608
  Serious: Yes (Death)
  Sender: FDA-Public Use
  Company Number: US-ROCHE-1036749

PATIENT
  Sex: Male
  Weight: 85.352 kg

DRUGS (16)
  1. MULTIPLE VITAMINS [Concomitant]
     Route: 048
  2. IBUPROFEN [Concomitant]
     Route: 048
  3. GLUCOSAMINE CHONDROITIN COMPLEX [Concomitant]
     Route: 048
  4. FISH OIL CONCENTRATE [Concomitant]
     Route: 048
  5. PEGASYS [Suspect]
     Indication: HEPATITIS C
     Route: 058
     Dates: start: 20110923, end: 20111209
  6. AMITRIPTYLINE HCL [Concomitant]
     Route: 048
  7. CLONAZEPAM [Concomitant]
     Route: 048
  8. LISINOPRIL [Concomitant]
     Route: 048
  9. INCIVEK [Suspect]
     Indication: HEPATITIS C
     Route: 048
     Dates: start: 20110923, end: 20111210
  10. RIBAVIRIN [Suspect]
     Dosage: 600 MG QAM  AND 400MG QPM
     Route: 048
     Dates: start: 20110923, end: 20111210
  11. NARCO (UNK INGREDIENTS) [Concomitant]
     Dosage: 1-2 TABLET
     Dates: start: 20111128
  12. NARCO (UNK INGREDIENTS) [Concomitant]
     Indication: ARTHRALGIA
     Dosage: 1-2 TABLET
     Dates: start: 20111111
  13. FOLIC ACID [Concomitant]
     Indication: ANAEMIA
  14. SYNTHROID [Concomitant]
  15. RIBAVIRIN [Suspect]
     Indication: HEPATITIS C
     Route: 048
     Dates: start: 20110923, end: 20111210
  16. ASPIRIN [Concomitant]
     Route: 048

REACTIONS (6)
  - CARDIO-RESPIRATORY ARREST [None]
  - SCIATICA [None]
  - MYALGIA [None]
  - AGITATION [None]
  - ARTHRALGIA [None]
  - ANAEMIA [None]
